FAERS Safety Report 5922345-6 (Version None)
Quarter: 2008Q4

REPORT INFORMATION
  Report Type: 
  Country: None (occurrence: None)
  Receive Date: 20081002
  Receipt Date: 20080930
  Transmission Date: 20090506
  Serious: Yes (Hospitalization)
  Sender: FDA-Public Use
  Company Number: 200813336

PATIENT
  Age: 41 Year
  Sex: Male

DRUGS (1)
  1. ZEMAIRA [Suspect]
     Dates: start: 20080401

REACTIONS (7)
  - CONTUSION [None]
  - DIZZINESS [None]
  - INFUSION RELATED REACTION [None]
  - MENTAL STATUS CHANGES [None]
  - OROPHARYNGEAL PAIN [None]
  - PRESYNCOPE [None]
  - RASH [None]
